FAERS Safety Report 24155277 (Version 1)
Quarter: 2024Q3

REPORT INFORMATION
  Report Type: Spontaneous
  Country: IT (occurrence: IT)
  Receive Date: 20240731
  Receipt Date: 20240731
  Transmission Date: 20241016
  Serious: Yes (Other)
  Sender: ALKEM
  Company Number: IT-ALKEM LABORATORIES LIMITED-IT-ALKEM-2024-15922

PATIENT
  Age: 32 Year
  Sex: Female

DRUGS (9)
  1. AZATHIOPRINE [Suspect]
     Active Substance: AZATHIOPRINE
     Indication: Myasthenia gravis
     Dosage: 50 MILLIGRAM, QD (BASELINE)
     Route: 065
  2. AZATHIOPRINE [Suspect]
     Active Substance: AZATHIOPRINE
     Dosage: 100 MILLIGRAM, QD (AT 3 MONTHS)
     Route: 065
  3. AZATHIOPRINE [Suspect]
     Active Substance: AZATHIOPRINE
     Dosage: 150 MILLIGRAM, QD (AT 6 MONTHS)
     Route: 065
  4. AZATHIOPRINE [Suspect]
     Active Substance: AZATHIOPRINE
     Dosage: 250 MILLIGRAM, QD (AT 18 MONTHS)
     Route: 065
  5. PREDNISONE [Suspect]
     Active Substance: PREDNISONE
     Indication: Myasthenia gravis
     Dosage: UNK, QD
     Route: 065
  6. PYRIDOSTIGMINE BROMIDE [Suspect]
     Active Substance: PYRIDOSTIGMINE BROMIDE
     Indication: Myasthenia gravis
     Dosage: 630 MILLIGRAM, QD (BASELINE)
     Route: 065
  7. PYRIDOSTIGMINE BROMIDE [Suspect]
     Active Substance: PYRIDOSTIGMINE BROMIDE
     Dosage: 630 MILLIGRAM, QD (AT 3 MONTHS)
     Route: 065
  8. PYRIDOSTIGMINE BROMIDE [Suspect]
     Active Substance: PYRIDOSTIGMINE BROMIDE
     Dosage: 480 MILLIGRAM, QD (AT 6 MONTHS)
     Route: 065
  9. PYRIDOSTIGMINE BROMIDE [Suspect]
     Active Substance: PYRIDOSTIGMINE BROMIDE
     Dosage: 310 MILLIGRAM, QD (AT 18 MONTHS)
     Route: 065

REACTIONS (39)
  - Rectal haemorrhage [Unknown]
  - Feeling abnormal [Unknown]
  - Abdominal pain upper [Unknown]
  - Abdominal pain [Unknown]
  - Blood urine present [Unknown]
  - Bowel movement irregularity [Unknown]
  - Conjunctivitis [Unknown]
  - Confusional state [Unknown]
  - Eye irritation [Unknown]
  - Chromaturia [Unknown]
  - Depressed mood [Unknown]
  - Dyspnoea [Unknown]
  - Sensory disturbance [Unknown]
  - Dyspepsia [Unknown]
  - Decreased appetite [Unknown]
  - Eye pain [Unknown]
  - Gingival bleeding [Unknown]
  - Gingival disorder [Unknown]
  - Generalised oedema [Unknown]
  - Hypoacusis [Unknown]
  - Irritability [Unknown]
  - Oedema peripheral [Unknown]
  - Weight increased [Unknown]
  - Pain [Unknown]
  - Pollakiuria [Unknown]
  - Palpitations [Unknown]
  - Pyrexia [Unknown]
  - Skin disorder [Unknown]
  - Stomatitis [Unknown]
  - Thirst [Unknown]
  - Vision blurred [Unknown]
  - Urine output decreased [Unknown]
  - Weight decreased [Unknown]
  - Drug intolerance [Unknown]
  - Vomiting [Unknown]
  - Malaise [Unknown]
  - Arthralgia [Unknown]
  - Rash erythematous [Unknown]
  - Fungal infection [Unknown]
